FAERS Safety Report 21009617 (Version 1)
Quarter: 2022Q2

REPORT INFORMATION
  Report Type: Spontaneous
  Country: US (occurrence: None)
  Receive Date: 20220625
  Receipt Date: 20220625
  Transmission Date: 20220720
  Serious: No
  Sender: FDA-Public Use
  Company Number: None

PATIENT
  Age: 38 Year
  Sex: Female
  Weight: 87.75 kg

DRUGS (10)
  1. METHYLPHENIDATE HYDROCHLORIDE [Suspect]
     Active Substance: METHYLPHENIDATE HYDROCHLORIDE
     Indication: Attention deficit hyperactivity disorder
     Dosage: OTHER QUANTITY : 1 TABLET(S);?FREQUENCY : 3 TIMES A DAY;?
     Route: 048
     Dates: start: 20220602
  2. CONCERTA [Concomitant]
     Active Substance: METHYLPHENIDATE HYDROCHLORIDE
  3. porcine thyroid medicine [Concomitant]
  4. METAXALONE [Concomitant]
     Active Substance: METAXALONE
  5. womens multivitamin [Concomitant]
  6. HAIR [Concomitant]
     Active Substance: PYRITHIONE ZINC
  7. METHYL FOLATE [Concomitant]
  8. BIOTIN [Concomitant]
     Active Substance: BIOTIN
  9. MAGNESIUM [Concomitant]
     Active Substance: MAGNESIUM
  10. VITAMIN D [Concomitant]
     Active Substance: VITAMIN D NOS

REACTIONS (22)
  - Product substitution issue [None]
  - Fatigue [None]
  - Listless [None]
  - Amnesia [None]
  - Memory impairment [None]
  - Disturbance in attention [None]
  - Agitation [None]
  - Frustration tolerance decreased [None]
  - Social avoidant behaviour [None]
  - Poor personal hygiene [None]
  - Impaired self-care [None]
  - Anxiety [None]
  - Stress [None]
  - Initial insomnia [None]
  - Asthenia [None]
  - Loss of personal independence in daily activities [None]
  - Somnolence [None]
  - Apathy [None]
  - Decreased interest [None]
  - Diplopia [None]
  - Dizziness [None]
  - Confusional state [None]
